FAERS Safety Report 5495474-1 (Version None)
Quarter: 2007Q4

REPORT INFORMATION
  Report Type: 
  Country: None (occurrence: None)
  Receive Date: 20071023
  Receipt Date: 20071011
  Transmission Date: 20080405
  Serious: Yes (Hospitalization, Other)
  Sender: FDA-Public Use
  Company Number: US021447

PATIENT
  Age: 48 Year
  Sex: Female
  Weight: 190.5108 kg

DRUGS (11)
  1. PROVIGIL [Suspect]
     Indication: FATIGUE
     Dosage: QD ORAL
     Route: 048
     Dates: start: 20060901, end: 20060915
  2. RISPERDAL [Suspect]
     Indication: DEPRESSION
     Dosage: 3 MG QD ORAL
     Route: 048
     Dates: start: 20020101, end: 20060915
  3. EFFEXOR XR [Concomitant]
  4. LITHIUM [Concomitant]
  5. PRILOSEC/00661201/ [Concomitant]
  6. ENABLEX [Concomitant]
  7. LIPITOR [Concomitant]
  8. TRIAMTERENE [Concomitant]
  9. MIRAPEX [Concomitant]
  10. POTASSIUM CHLORIDE [Concomitant]
  11. COUMADIN [Concomitant]

REACTIONS (31)
  - ANAEMIA [None]
  - CHOKING SENSATION [None]
  - DYSKINESIA [None]
  - DYSPHAGIA [None]
  - EYE DISORDER [None]
  - EYE PAIN [None]
  - HYPOAESTHESIA ORAL [None]
  - ILL-DEFINED DISORDER [None]
  - IMPAIRED GASTRIC EMPTYING [None]
  - INFLAMMATION [None]
  - LABORATORY TEST ABNORMAL [None]
  - LIP DRY [None]
  - LIP EXFOLIATION [None]
  - MIGRAINE [None]
  - MUCOSAL INFLAMMATION [None]
  - MUSCLE TWITCHING [None]
  - NAUSEA [None]
  - ORAL CANDIDIASIS [None]
  - ORAL DISCOMFORT [None]
  - ORAL DISORDER [None]
  - ORAL PAIN [None]
  - PAIN [None]
  - PARAESTHESIA ORAL [None]
  - PHOTOPSIA [None]
  - PRURITUS [None]
  - RESPIRATORY RATE INCREASED [None]
  - STOMATITIS [None]
  - TARDIVE DYSKINESIA [None]
  - TREMOR [None]
  - VISUAL DISTURBANCE [None]
  - VOMITING [None]
